FAERS Safety Report 8543391-2 (Version None)
Quarter: 2012Q3

REPORT INFORMATION
  Report Type: 
  Country: None (occurrence: None)
  Receive Date: 20120727
  Receipt Date: 20120716
  Transmission Date: 20120928
  Serious: Yes (Hospitalization)
  Sender: FDA-Public Use
  Company Number: US-BAYER-2012-028731

PATIENT
  Age: 45 Year
  Sex: Female

DRUGS (8)
  1. CEFTIN [Concomitant]
  2. FLONASE [Concomitant]
  3. YASMIN [Suspect]
     Indication: OVARIAN CYST
     Dosage: UNK
     Dates: start: 20060101, end: 20100312
  4. TOPAMAX [Concomitant]
     Indication: MIGRAINE
     Route: 048
  5. YAZ [Suspect]
     Indication: OVARIAN CYST
     Dosage: UNK
     Dates: start: 20060101, end: 20100312
  6. COUMADIN [Concomitant]
     Indication: PULMONARY EMBOLISM
  7. AMERGE [Concomitant]
  8. COUMADIN [Concomitant]
     Indication: DEEP VEIN THROMBOSIS

REACTIONS (4)
  - INJURY [None]
  - DEEP VEIN THROMBOSIS [None]
  - PAIN [None]
  - PULMONARY EMBOLISM [None]
